FAERS Safety Report 7124497-1 (Version None)
Quarter: 2010Q4

REPORT INFORMATION
  Report Type: 
  Country: None (occurrence: None)
  Receive Date: 20101128
  Receipt Date: 20101117
  Transmission Date: 20110411
  Serious: Yes (Other)
  Sender: FDA-Public Use
  Company Number: US-AMGEN-USASP2010003405

PATIENT

DRUGS (1)
  1. NPLATE [Suspect]
     Indication: IDIOPATHIC THROMBOCYTOPENIC PURPURA
     Dosage: 350 A?G, UNK
     Dates: start: 20100202, end: 20100308

REACTIONS (2)
  - PLATELET COUNT ABNORMAL [None]
  - THERAPEUTIC RESPONSE DECREASED [None]
